FAERS Safety Report 7498907-4 (Version None)
Quarter: 2011Q2

REPORT INFORMATION
  Report Type: 
  Country: None (occurrence: None)
  Receive Date: 20110524
  Receipt Date: 20110516
  Transmission Date: 20111010
  Serious: Yes (Other)
  Sender: FDA-Public Use
  Company Number: US-JNJFOC-20110504318

PATIENT
  Sex: Female

DRUGS (3)
  1. LEVAQUIN [Suspect]
     Indication: SINUSITIS
     Route: 048
     Dates: start: 20110505, end: 20110505
  2. LEVAQUIN [Suspect]
     Indication: EAR INFECTION
     Route: 048
     Dates: start: 20110505, end: 20110505
  3. OTHER THERAPEUTIC PRODUCT [Concomitant]
     Indication: HYPOTHYROIDISM
     Route: 048

REACTIONS (6)
  - HALLUCINATION, VISUAL [None]
  - ANXIETY [None]
  - TINNITUS [None]
  - NERVOUSNESS [None]
  - NIGHTMARE [None]
  - FEAR OF DEATH [None]
